FAERS Safety Report 8496866-9 (Version None)
Quarter: 2012Q3

REPORT INFORMATION
  Report Type: 
  Country: None (occurrence: None)
  Receive Date: 20120709
  Receipt Date: 20120627
  Transmission Date: 20120928
  Serious: Yes (Hospitalization, Other)
  Sender: FDA-Public Use
  Company Number: US-ELI_LILLY_AND_COMPANY-US201101007575

PATIENT
  Sex: Female
  Weight: 50.794 kg

DRUGS (17)
  1. FORTEO [Suspect]
     Dosage: 20 UG, QD
     Route: 058
  2. FORTEO [Suspect]
     Dosage: 20 UG, QD
     Route: 058
  3. FORTEO [Suspect]
     Dosage: 20 UG, QD
     Route: 058
  4. FORTEO [Suspect]
     Dosage: 20 UG, QD
     Dates: start: 20100401
  5. OXYGEN [Concomitant]
  6. PANTOTHENIC ACID [Concomitant]
     Dosage: UNK
  7. FOLIC ACID [Concomitant]
     Dosage: UNK
  8. ASCORBIC ACID [Concomitant]
     Dosage: UNK
  9. VITAMIN D [Concomitant]
     Dosage: 50000 U, OTHER
  10. ZINC SULFATE [Concomitant]
     Dosage: UNK
  11. FORTEO [Suspect]
     Indication: OSTEOPOROSIS
     Dosage: 20 UG, DAILY (1/D)
     Route: 058
     Dates: start: 20100401
  12. FORTEO [Suspect]
     Dosage: 20 UG, QD
     Route: 058
     Dates: end: 20110926
  13. FORTEO [Suspect]
     Dosage: 20 UG, QD
     Route: 058
  14. FORTEO [Suspect]
     Dosage: 20 UG, QD
     Route: 058
     Dates: start: 20111010
  15. CALCIUM [Concomitant]
  16. MULTI-VITAMIN [Concomitant]
     Dosage: UNK, QD
  17. STOOL SOFTENER [Concomitant]
     Dosage: UNK

REACTIONS (9)
  - FALL [None]
  - LIMB OPERATION [None]
  - FEMUR FRACTURE [None]
  - FEAR [None]
  - BONE DENSITY DECREASED [None]
  - BACK PAIN [None]
  - INJECTION SITE HAEMATOMA [None]
  - THROMBOSIS [None]
  - INJECTION SITE HAEMORRHAGE [None]
